FAERS Safety Report 9295945 (Version 1)
Quarter: 2013Q1

REPORT INFORMATION
  Report Type: Spontaneous
  Country: US (occurrence: None)
  Receive Date: 20121231
  Receipt Date: 20121231
  Transmission Date: 20140127
  Serious: Yes (Hospitalization)
  Sender: FDA-Public Use
  Company Number: RB-44509-2012

PATIENT
  Age: 33 Year
  Sex: Male

DRUGS (5)
  1. SUBOXONE [Suspect]
     Indication: DRUG DEPENDENCE
     Dosage: 1/2 TABLET DAILY SUBLINGUAL
     Dates: start: 2012, end: 2012
  2. SUBUTEX [Suspect]
     Indication: DRUG DEPENDENCE
     Dosage: 24 MG
     Route: 060
     Dates: start: 2011, end: 2012
  3. SUBOXONE [Suspect]
     Indication: DRUG DEPENDENCE
     Dosage: SUBOXONE FILM, 1/2 STRIP DAILY SUBLINGUAL
     Route: 060
     Dates: start: 2012
  4. XANAX [Suspect]
     Indication: ANXIETY
     Route: 048
  5. MARIJUANA [Suspect]
     Indication: PRODUCT USED FOR UNKNOWN INDICATION
     Dosage: DOSING DETAILS UNSPECIFIED RESPIRATORY (INHALATION)

REACTIONS (18)
  - Staphylococcal infection [None]
  - Oedema peripheral [None]
  - Condition aggravated [None]
  - Amnesia [None]
  - Night blindness [None]
  - Abnormal sensation in eye [None]
  - Vision blurred [None]
  - Road traffic accident [None]
  - Muscle spasms [None]
  - Dizziness [None]
  - Migraine [None]
  - Wrong technique in drug usage process [None]
  - Substance abuse [None]
  - Intentional drug misuse [None]
  - Recurring skin boils [None]
  - Insomnia [None]
  - Pain in extremity [None]
  - Headache [None]
